FAERS Safety Report 20913297 (Version 4)
Quarter: 2022Q3

REPORT INFORMATION
  Report Type: Spontaneous
  Country: US (occurrence: US)
  Receive Date: 20220603
  Receipt Date: 20220908
  Transmission Date: 20221026
  Serious: Yes (Other)
  Sender: FDA-Public Use
  Company Number: US-PFIZER INC-202200783284

PATIENT
  Age: 81 Year
  Sex: Female
  Weight: 61.224 kg

DRUGS (5)
  1. PAXLOVID [Suspect]
     Active Substance: NIRMATRELVIR\RITONAVIR
     Indication: COVID-19 treatment
     Dosage: [PF-07321332 300 MG]/[RITONAVIR 100 MG], BID (TWICE A DAY)
     Route: 048
     Dates: start: 20220530, end: 20220531
  2. NIACINAMIDE [Concomitant]
     Active Substance: NIACINAMIDE
     Indication: Skin cancer
     Dosage: 500 MG, DAILY
     Dates: start: 202004
  3. CALCIUM [Concomitant]
     Active Substance: CALCIUM
     Dosage: UNK
     Dates: start: 201801
  4. MAGNESIUM [Concomitant]
     Active Substance: MAGNESIUM
     Dosage: UNK
     Dates: start: 201801
  5. ZINC [Concomitant]
     Active Substance: ZINC
     Dosage: UNK
     Dates: start: 201801

REACTIONS (12)
  - Dysgeusia [Recovered/Resolved with Sequelae]
  - Oral discomfort [Recovered/Resolved]
  - Tongue discomfort [Recovered/Resolved]
  - Throat irritation [Recovered/Resolved]
  - Pharyngeal swelling [Recovered/Resolved]
  - Palatal disorder [Recovered/Resolved]
  - Glossitis [Recovered/Resolved]
  - Swollen tongue [Recovered/Resolved]
  - Oral pain [Recovered/Resolved]
  - Mouth swelling [Recovered/Resolved]
  - Stomatitis [Recovered/Resolved]
  - Oral mucosal erythema [Recovered/Resolved]

NARRATIVE: CASE EVENT DATE: 20220501
